FAERS Safety Report 8383140-4 (Version None)
Quarter: 2012Q2

REPORT INFORMATION
  Report Type: 
  Country: None (occurrence: None)
  Receive Date: 20120522
  Receipt Date: 20120509
  Transmission Date: 20120825
  Serious: Yes (Death)
  Sender: FDA-Public Use
  Company Number: 2012ST000452

PATIENT
  Age: 75 Year
  Sex: Female

DRUGS (2)
  1. MATULANE [Suspect]
     Indication: B-CELL LYMPHOMA
     Dosage: 150 MG;QD;PO, 100 MG;QD;PO
     Route: 048
     Dates: start: 20120209
  2. MATULANE [Suspect]
     Indication: B-CELL LYMPHOMA
     Dosage: 150 MG;QD;PO, 100 MG;QD;PO
     Route: 048
     Dates: start: 20120209

REACTIONS (1)
  - PULMONARY EMBOLISM [None]
